FAERS Safety Report 6875508-X (Version None)
Quarter: 2010Q3

REPORT INFORMATION
  Report Type: 
  Country: None (occurrence: None)
  Receive Date: 20100727
  Receipt Date: 20080314
  Transmission Date: 20110219
  Serious: Yes (Death)
  Sender: FDA-Public Use
  Company Number: US-JNJFOC-20080303654

PATIENT
  Sex: Male

DRUGS (12)
  1. CISAPRIDE [Suspect]
     Indication: DIABETIC GASTROPARESIS
     Route: 048
  2. ASPIRIN [Concomitant]
     Route: 065
  3. HYDROCODONE BITARTRATE [Concomitant]
     Route: 065
  4. PROGRAF [Concomitant]
     Route: 065
  5. PREDNISONE [Concomitant]
     Route: 065
  6. TOPROL-XL [Concomitant]
     Route: 065
  7. NORVASC [Concomitant]
     Route: 065
  8. LISINOPRIL [Concomitant]
     Route: 065
  9. LASIX [Concomitant]
     Route: 065
  10. MONOXIDIL [Concomitant]
     Route: 065
  11. LANTUS [Concomitant]
     Route: 065
  12. HUMALOG [Concomitant]
     Route: 065

REACTIONS (1)
  - DEATH [None]
